FAERS Safety Report 6821298-6 (Version None)
Quarter: 2010Q3

REPORT INFORMATION
  Report Type: 
  Country: None (occurrence: None)
  Receive Date: 20100707
  Receipt Date: 20080606
  Transmission Date: 20110219
  Serious: No
  Sender: FDA-Public Use
  Company Number: US-PFIZER INC-2008048854

PATIENT
  Sex: Female
  Weight: 69.09 kg

DRUGS (8)
  1. SERTRALINE [Suspect]
     Indication: OBSESSIVE THOUGHTS
     Dates: start: 20080604
  2. HYDROCHLOROTHIAZIDE [Concomitant]
  3. ALL OTHER THERAPEUTIC PRODUCTS [Concomitant]
  4. ALL OTHER THERAPEUTIC PRODUCTS [Concomitant]
  5. ALL OTHER THERAPEUTIC PRODUCTS [Concomitant]
  6. GLUCOSAMINE [Concomitant]
  7. CALCIUM CARBONATE [Concomitant]
  8. FISH OIL [Concomitant]

REACTIONS (2)
  - DEPRESSED MOOD [None]
  - HEADACHE [None]
